FAERS Safety Report 9220297 (Version 1)
Quarter: 2013Q1

REPORT INFORMATION
  Report Type: Spontaneous
  Country: US (occurrence: None)
  Receive Date: 20120831
  Receipt Date: 20120831
  Transmission Date: 20140127
  Serious: No
  Sender: FDA-Public Use
  Company Number: 1000036636

PATIENT
  Age: 71 Year
  Sex: Female

DRUGS (5)
  1. DALIRESP (ROFLUMILAST) [Suspect]
     Indication: CHRONIC OBSTRUCTIVE PULMONARY DISEASE
     Route: 048
     Dates: start: 20120622
  2. SYMBICORT (BUDESONIDE, FORMOTEROL) (BUDESONIDE, FORMOTEROL) [Concomitant]
  3. XOPENEX (LEVOSALBUTAMOL HYDROCHLORIDE) (LEVOSALBUTAMOL HYDROCHLORIDE) [Concomitant]
  4. CALCIUM (CALCIUM) (CALCIUM) [Concomitant]
  5. GLUCOSAMINE (GLUCOSAMINE) (GLUCOSAMINE) [Concomitant]

REACTIONS (2)
  - Nausea [None]
  - Insomnia [None]
